FAERS Safety Report 8600944-0 (Version None)
Quarter: 2012Q3

REPORT INFORMATION
  Report Type: 
  Country: None (occurrence: None)
  Receive Date: 20120817
  Receipt Date: 20120718
  Transmission Date: 20120928
  Serious: Yes (Hospitalization)
  Sender: FDA-Public Use
  Company Number: DE-SANOFI-AVENTIS-2012SA052901

PATIENT
  Age: 78 Year
  Sex: Female
  Weight: 47 kg

DRUGS (8)
  1. RAMIPRIL [Suspect]
     Indication: HYPERTENSION
     Route: 048
     Dates: start: 20120518, end: 20120629
  2. EPLERENONE [Suspect]
     Dosage: DOSE: UNK MG
     Route: 048
     Dates: start: 20120518, end: 20120628
  3. PANTOPRAZOLE [Suspect]
     Indication: PROPHYLAXIS AGAINST GASTROINTESTINAL ULCER
     Route: 048
     Dates: start: 20120518, end: 20120629
  4. SIMVASTATIN [Suspect]
     Indication: HYPERLIPIDAEMIA
     Route: 048
     Dates: start: 20120518, end: 20120629
  5. CLOPIDOGREL BISULFATE [Suspect]
     Indication: ANTICOAGULANT THERAPY
     Route: 048
     Dates: start: 20120518, end: 20120629
  6. ACETYLSALICYLIC ACID SRT [Concomitant]
     Indication: ANTICOAGULANT THERAPY
     Route: 048
     Dates: start: 20120518
  7. EPLERENONE [Suspect]
     Indication: ACUTE MYOCARDIAL INFARCTION
     Route: 048
     Dates: start: 20120517, end: 20120517
  8. BISOPROLOL FUMARATE [Suspect]
     Indication: HYPERTENSION
     Route: 048
     Dates: start: 20120518, end: 20120629

REACTIONS (2)
  - LEUKOPENIA [None]
  - VERTIGO [None]
